FAERS Safety Report 17481506 (Version 1)
Quarter: 2020Q1

REPORT INFORMATION
  Report Type: Spontaneous
  Country: None (occurrence: IR)
  Receive Date: 20200302
  Receipt Date: 20200302
  Transmission Date: 20200409
  Serious: Yes (Other)
  Sender: FDA-Public Use
  Company Number: IR-ORION CORPORATION ORION PHARMA-20_00008566

PATIENT
  Age: 77 Year
  Sex: Female

DRUGS (1)
  1. METHOTREXATE. [Suspect]
     Active Substance: METHOTREXATE
     Indication: RHEUMATOID ARTHRITIS
     Route: 065

REACTIONS (12)
  - Pharyngeal erythema [Recovered/Resolved]
  - Rash maculo-papular [Recovered/Resolved]
  - Conjunctival irritation [Recovered/Resolved]
  - Petechiae [Recovered/Resolved]
  - Toxicity to various agents [Recovered/Resolved]
  - Oedema mucosal [Recovered/Resolved]
  - Oral mucosal erythema [Recovered/Resolved]
  - Product prescribing error [Recovered/Resolved]
  - Leukopenia [Recovered/Resolved]
  - Platelet count decreased [Recovered/Resolved]
  - Product use issue [Recovered/Resolved]
  - Blood creatinine increased [Recovered/Resolved]
